FAERS Safety Report 6099599-1 (Version None)
Quarter: 2009Q1

REPORT INFORMATION
  Report Type: 
  Country: None (occurrence: None)
  Receive Date: 20090226
  Receipt Date: 20090216
  Transmission Date: 20090719
  Serious: Yes (Other)
  Sender: FDA-Public Use
  Company Number: TCI2009A00454

PATIENT
  Age: 49 Year
  Sex: Male

DRUGS (5)
  1. LANSOPRAZOLE [Suspect]
     Indication: PROPHYLAXIS AGAINST GASTROINTESTINAL ULCER
     Dosage: (15MG) ORAL
     Route: 048
     Dates: start: 20080131, end: 20090209
  2. LORCAM (LORNOXICAM) [Concomitant]
  3. RIMATIL (BUCILLAMINE) [Concomitant]
  4. KETOPROFEN [Concomitant]
  5. PREDNISOLONE [Concomitant]

REACTIONS (2)
  - DYSPLASIA [None]
  - SMALL INTESTINE CARCINOMA [None]
